FAERS Safety Report 12391853 (Version 2)
Quarter: 2016Q2

REPORT INFORMATION
  Report Type: Spontaneous
  Country: HU (occurrence: HU)
  Receive Date: 20160523
  Receipt Date: 20160614
  Transmission Date: 20160815
  Serious: Yes (Other)
  Sender: FDA-Public Use
  Company Number: HU-AMGEN-HUNSP2016063969

PATIENT
  Age: 74 Year
  Sex: Male

DRUGS (4)
  1. XGEVA [Suspect]
     Active Substance: DENOSUMAB
     Indication: PROSTATE CANCER
     Dosage: 120 MG, Q4WK
     Route: 058
     Dates: start: 20160330, end: 20160427
  2. XGEVA [Suspect]
     Active Substance: DENOSUMAB
     Indication: METASTASES TO BONE
  3. DIPHERELINE [Concomitant]
     Indication: PROSTATE CANCER
     Dosage: 11.25 UNIT, Q3MO
     Dates: start: 20141105
  4. ABIRATERONE [Concomitant]
     Active Substance: ABIRATERONE
     Indication: PROSTATE CANCER
     Dosage: UNK
     Dates: start: 20141201

REACTIONS (1)
  - Osteonecrosis of jaw [Not Recovered/Not Resolved]

NARRATIVE: CASE EVENT DATE: 20160426
